FAERS Safety Report 6052005-5 (Version None)
Quarter: 2009Q1

REPORT INFORMATION
  Report Type: 
  Country: None (occurrence: None)
  Receive Date: 20090122
  Receipt Date: 20090122
  Transmission Date: 20090719
  Serious: Yes (Other)
  Sender: FDA-Public Use
  Company Number: None

PATIENT
  Sex: Male
  Weight: 21.7727 kg

DRUGS (2)
  1. CEFDINIR [Suspect]
     Indication: BACTERIAL INFECTION
     Dosage: PO
     Route: 048
     Dates: start: 20090112, end: 20090113
  2. CEFDINIR [Suspect]
     Indication: TONSILLITIS
     Dosage: PO
     Route: 048
     Dates: start: 20090112, end: 20090113

REACTIONS (14)
  - ABNORMAL BEHAVIOUR [None]
  - COGNITIVE DISORDER [None]
  - DYSKINESIA [None]
  - EAR INFECTION [None]
  - EYE ROLLING [None]
  - INDIFFERENCE [None]
  - LETHARGY [None]
  - MOVEMENT DISORDER [None]
  - ORAL PRURITUS [None]
  - SPEECH DISORDER [None]
  - STARING [None]
  - TOOTH DISORDER [None]
  - TYMPANIC MEMBRANE DISORDER [None]
  - UNRESPONSIVE TO STIMULI [None]
